FAERS Safety Report 9757404 (Version 2)
Quarter: 2014Q2

REPORT INFORMATION
  Report Type: Report from Study
  Country: GR (occurrence: GR)
  Receive Date: 20131214
  Receipt Date: 20140613
  Transmission Date: 20141212
  Serious: Yes (Other)
  Sender: FDA-Public Use
  Company Number: GR-US-EMD SERONO, INC.-7256810

PATIENT
  Age: 37 Year
  Sex: Female
  Weight: 68 kg

DRUGS (3)
  1. REBIF [Suspect]
     Indication: MULTIPLE SCLEROSIS
     Route: 058
     Dates: start: 201108, end: 20131125
  2. REBIF [Suspect]
     Route: 058
     Dates: start: 20131215
  3. OMACOR                             /01403701/ [Concomitant]
     Indication: HYPERTRIGLYCERIDAEMIA
     Route: 048
     Dates: start: 201107

REACTIONS (3)
  - Panniculitis [Recovered/Resolved]
  - Soft tissue infection [Recovered/Resolved]
  - Lack of injection site rotation [Unknown]
